FAERS Safety Report 9505605 (Version 1)
Quarter: 2013Q1

REPORT INFORMATION
  Report Type: Spontaneous
  Country: US (occurrence: None)
  Receive Date: 20130221
  Receipt Date: 20130221
  Transmission Date: 20140127
  Serious: Yes (Hospitalization)
  Sender: FDA-Public Use
  Company Number: 1203USA00238

PATIENT
  Age: 59 Year
  Sex: Male
  Weight: 111.1 kg

DRUGS (13)
  1. PRINIVIL [Suspect]
     Indication: HYPERTENSION
     Route: 048
  2. BENICAR [Suspect]
     Indication: HYPERTENSION
  3. BENICAR [Suspect]
     Indication: HYPERTENSION
  4. ATENDOL [Suspect]
  5. ATENDOL [Suspect]
  6. MK-0805 [Suspect]
     Route: 048
  7. MK-0805 [Suspect]
     Route: 048
  8. MK-0152 [Suspect]
  9. PRAVASTATIN SODIUM (PRAVASTATIN SODIUM) [Concomitant]
  10. MK-9378 (METFORMIN) [Concomitant]
  11. GLYBURIDE (GLYBURIDE) [Concomitant]
  12. BYETTA (EXENATIDE) [Concomitant]
  13. TEKTURNA (ALISKIREN FUMARATE) [Concomitant]

REACTIONS (3)
  - Pneumonia [None]
  - Blood glucose increased [None]
  - Protein urine present [None]
